FAERS Safety Report 18403912 (Version 1)
Quarter: 2020Q4

REPORT INFORMATION
  Report Type: Spontaneous
  Country: DZ (occurrence: DZ)
  Receive Date: 20201020
  Receipt Date: 20201020
  Transmission Date: 20210114
  Serious: Yes (Death)
  Sender: FDA-Public Use
  Company Number: DZ-MYLANLABS-2020M1087797

PATIENT
  Age: 12 Month
  Sex: Female
  Weight: 2.7 kg

DRUGS (4)
  1. CALCIUM [Concomitant]
     Active Substance: CALCIUM
     Indication: HYPOCALCAEMIA
     Dosage: 1 COFFEE SPOON, TID
     Route: 048
     Dates: start: 20191201, end: 20200111
  2. TIENAM [Concomitant]
     Active Substance: CILASTATIN SODIUM\IMIPENEM
     Indication: INFECTION
     Dosage: 60 MILLIGRAM, QD
     Route: 042
     Dates: start: 20191230, end: 20200111
  3. PHOSPHORUS [Concomitant]
     Active Substance: PHOSPHORUS
     Indication: HYPOPHOSPHATAEMIA
     Dosage: 25 GTT DROPS, BID
     Route: 048
     Dates: start: 201212, end: 20200111
  4. CYSTAGON [Suspect]
     Active Substance: CYSTEAMINE BITARTRATE
     Indication: CYSTINOSIS
     Dosage: 800 MILLIGRAM/SQ. METER, QD (50 MG EVERY 6H)
     Route: 048
     Dates: start: 20191222, end: 20200111

REACTIONS (4)
  - Pallor [Fatal]
  - Altered state of consciousness [Fatal]
  - Diarrhoea [Fatal]
  - Vomiting [Fatal]

NARRATIVE: CASE EVENT DATE: 20200111
